FAERS Safety Report 9835280 (Version 1)
Quarter: 2014Q1

REPORT INFORMATION
  Report Type: Spontaneous
  Country: US (occurrence: US)
  Receive Date: 20140122
  Receipt Date: 20140122
  Transmission Date: 20141002
  Serious: Yes (Other)
  Sender: FDA-Public Use
  Company Number: US-BAYER-2014-008179

PATIENT
  Age: 48 Year
  Sex: Male

DRUGS (1)
  1. GADAVIST [Suspect]
     Indication: PANCREATIC DISORDER
     Dosage: 12 ML, ONCE
     Route: 042

REACTIONS (3)
  - Urticaria [Recovered/Resolved]
  - Swelling face [Recovered/Resolved]
  - Eye swelling [Recovered/Resolved]
